FAERS Safety Report 20431428 (Version 3)
Quarter: 2022Q1

REPORT INFORMATION
  Report Type: Report from Study
  Country: US (occurrence: US)
  Receive Date: 20220204
  Receipt Date: 20220316
  Transmission Date: 20220423
  Serious: Yes (Death, Hospitalization, Other)
  Sender: FDA-Public Use
  Company Number: US-BAYER-2022A016297

PATIENT
  Age: 87 Year
  Sex: Female
  Weight: 58.05 kg

DRUGS (31)
  1. ADEMPAS [Suspect]
     Active Substance: RIOCIGUAT
     Indication: Pulmonary arterial hypertension
     Dosage: UNK
     Dates: start: 20211006
  2. ADEMPAS [Suspect]
     Active Substance: RIOCIGUAT
     Indication: Pulmonary arterial hypertension
     Dosage: 1 MG, TID
     Route: 048
     Dates: start: 20210908
  3. ELIQUIS [Concomitant]
     Active Substance: APIXABAN
     Dosage: 2.5 MG, BID
     Dates: start: 20210107
  4. DILTIAZEM [Concomitant]
     Active Substance: DILTIAZEM
  5. ALBUTEROL\IPRATROPIUM [Concomitant]
     Active Substance: ALBUTEROL\IPRATROPIUM
     Dosage: 0.5-2.5 MG/3 ML
     Dates: start: 20210628
  6. ERGOCALCIFEROL [Concomitant]
     Active Substance: ERGOCALCIFEROL
     Dosage: 1.25 MG
     Dates: start: 20210826
  7. ILEVRO [Concomitant]
     Active Substance: NEPAFENAC
     Dosage: UNK
     Dates: start: 20180912
  8. TOPROL XL [Concomitant]
     Active Substance: METOPROLOL SUCCINATE
     Dosage: 50 MG
     Dates: start: 20210628
  9. PROAMATINE [Concomitant]
     Active Substance: MIDODRINE HYDROCHLORIDE
     Dosage: 10 MG, TID
     Dates: start: 20211020
  10. KLOR-CON [Concomitant]
     Active Substance: POTASSIUM CHLORIDE
     Dosage: UNK UNK, TID
     Dates: start: 20210915
  11. TORSEMIDE [Concomitant]
     Active Substance: TORSEMIDE
     Dosage: 100 MG
     Route: 048
     Dates: start: 20211025
  12. MORPHINE [Concomitant]
     Active Substance: MORPHINE
     Dosage: 4 MG
  13. MORPHINE [Concomitant]
     Active Substance: MORPHINE
     Dosage: 2 MG
  14. FUROSEMIDE [Concomitant]
     Active Substance: FUROSEMIDE
     Dosage: 40 MG
     Route: 042
     Dates: start: 20220109
  15. METOPROLOL [Concomitant]
     Active Substance: METOPROLOL
     Dosage: 5 MG
     Dates: start: 20220109
  16. TYLENOL [Concomitant]
     Active Substance: ACETAMINOPHEN
     Dosage: 650 MG
  17. MELATONIN [Concomitant]
     Active Substance: MELATONIN
     Dosage: 3 MG
  18. COLACE [Concomitant]
     Active Substance: DOCUSATE SODIUM
     Dosage: 100 MG
  19. MAGNESIUM HYDROXIDE [Concomitant]
     Active Substance: MAGNESIUM HYDROXIDE
  20. DULCOLAX (BISACODYL) [Concomitant]
     Active Substance: BISACODYL
     Dosage: 10 MG
  21. ZOFRAN [Concomitant]
     Active Substance: ONDANSETRON HYDROCHLORIDE
     Dosage: 4 MG
  22. ASTRAZENECA COVID-19 VACCINE [Concomitant]
     Active Substance: AZD-1222
  23. CALCIUM GLUCONATE [Concomitant]
     Active Substance: CALCIUM GLUCONATE
     Dosage: 2 G
     Route: 042
  24. DEXTROSE [Concomitant]
     Active Substance: DEXTROSE
  25. KETOROLAC [Concomitant]
     Active Substance: KETOROLAC TROMETHAMINE
     Dosage: 1 DROP, BID
  26. SODIUM ZIRCONIUM CYCLOSILICATE [Concomitant]
     Active Substance: SODIUM ZIRCONIUM CYCLOSILICATE
  27. TESSALON [Concomitant]
     Active Substance: BENZONATATE
     Dosage: 100 MG
  28. ROBINUL [Concomitant]
     Active Substance: GLYCOPYRROLATE
     Dosage: 4 MG
  29. INSULIN NOS [Concomitant]
     Active Substance: INSULIN NOS
     Dosage: UNK
     Dates: start: 20220110
  30. LIDOCAINE [Concomitant]
     Active Substance: LIDOCAINE
  31. MAGNESIUM SULFATE [Concomitant]
     Active Substance: MAGNESIUM SULFATE
     Dosage: 2 G

REACTIONS (13)
  - Cardiac failure [Fatal]
  - Acute left ventricular failure [None]
  - Cardiac failure acute [None]
  - Hyperkalaemia [None]
  - Ascites [None]
  - Hypoglycaemia [None]
  - Generalised oedema [None]
  - Acute respiratory distress syndrome [None]
  - Oedema peripheral [None]
  - Chest pain [None]
  - Dyspnoea [None]
  - Abdominal distension [None]
  - Localised oedema [None]

NARRATIVE: CASE EVENT DATE: 20211105
